FAERS Safety Report 4497181-0 (Version None)
Quarter: 2004Q4

REPORT INFORMATION
  Report Type: 
  Country: None (occurrence: None)
  Receive Date: 20041105
  Receipt Date: 20041021
  Transmission Date: 20050328
  Serious: Yes (Death)
  Sender: FDA-Public Use
  Company Number: 2004S1002968

PATIENT
  Age: 57 Year
  Sex: Female

DRUGS (11)
  1. CLOZAPINE [Suspect]
     Indication: SCHIZOPHRENIA
     Dosage: 200MG QAM AND 300MG HS, ORAL
     Route: 048
     Dates: start: 20021001
  2. RAMIPRIL [Concomitant]
  3. FUROSEMIDE [Concomitant]
  4. CARVEDILOL [Concomitant]
  5. METHOTREXATE [Concomitant]
  6. DIGOXIN [Concomitant]
  7. RISPERIDONE [Concomitant]
  8. IRON [Concomitant]
  9. FOLIC ACID [Concomitant]
  10. ACETAMINOPHEN [Concomitant]
  11. ASPIRIN [Concomitant]

REACTIONS (1)
  - CORONARY ARTERY ATHEROSCLEROSIS [None]
